APPROVED DRUG PRODUCT: CARISOPRODOL
Active Ingredient: CARISOPRODOL
Strength: 350MG
Dosage Form/Route: TABLET;ORAL
Application: A203374 | Product #001 | TE Code: AA
Applicant: SCIEGEN PHARMACEUTICALS INC
Approved: Jan 27, 2014 | RLD: No | RS: No | Type: RX